FAERS Safety Report 6266813-9 (Version None)
Quarter: 2009Q3

REPORT INFORMATION
  Report Type: 
  Country: None (occurrence: None)
  Receive Date: 20090709
  Receipt Date: 20090709
  Transmission Date: 20100115
  Serious: Yes (Other)
  Sender: FDA-Public Use
  Company Number: None

PATIENT
  Age: 65 Year
  Sex: Female
  Weight: 75.7507 kg

DRUGS (2)
  1. SULFAMETHOXAZOLE AND TRIMETHOPRIM [Suspect]
     Indication: URINARY TRACT INFECTION
     Dosage: DS 800-160 TWICE A DAY MOUTH
     Route: 048
     Dates: start: 20090609
  2. SULFAMETHOXAZOLE AND TRIMETHOPRIM [Suspect]
     Indication: URINARY TRACT INFECTION
     Dosage: DS 800-160 TWICE A DAY MOUTH
     Route: 048
     Dates: start: 20090612

REACTIONS (8)
  - ABDOMINAL PAIN UPPER [None]
  - BACK PAIN [None]
  - HYPERTENSION [None]
  - LIVER DISORDER [None]
  - OEDEMA PERIPHERAL [None]
  - PRURITUS [None]
  - RENAL DISORDER [None]
  - WEIGHT INCREASED [None]
